FAERS Safety Report 5256267-3 (Version None)
Quarter: 2007Q1

REPORT INFORMATION
  Report Type: 
  Country: None (occurrence: None)
  Receive Date: 20070302
  Receipt Date: 20061218
  Transmission Date: 20070707
  Serious: Yes (Hospitalization)
  Sender: FDA-Public Use
  Company Number: 163-C5013-06040684

PATIENT
  Age: 45 Year
  Sex: Male
  Weight: 87.0906 kg

DRUGS (4)
  1. CC-5013 (LENALIDOMIDE) (CAPSULES) [Suspect]
     Indication: MULTIPLE MYELOMA
     Dosage: 25 MG, QD, ORAL
     Route: 048
     Dates: start: 20060407, end: 20060417
  2. DEXAMETHASONE TAB [Concomitant]
  3. AREDIA [Concomitant]
  4. CELEBREX [Concomitant]

REACTIONS (11)
  - ANAEMIA [None]
  - BLOOD SODIUM DECREASED [None]
  - CHOLESTASIS [None]
  - DEHYDRATION [None]
  - DIABETES MELLITUS INADEQUATE CONTROL [None]
  - HAEMOLYSIS [None]
  - HEPATITIS [None]
  - HYPERGLYCAEMIA [None]
  - PHARYNGOLARYNGEAL PAIN [None]
  - RENAL FAILURE ACUTE [None]
  - THROMBOCYTOPENIA [None]
